FAERS Safety Report 25685733 (Version 1)
Quarter: 2025Q3

REPORT INFORMATION
  Report Type: Spontaneous
  Country: CN (occurrence: CN)
  Receive Date: 20250815
  Receipt Date: 20250815
  Transmission Date: 20251020
  Serious: Yes (Hospitalization)
  Sender: MERCK SHARP & DOHME LLC
  Company Number: CN-009507513-2317873

PATIENT
  Age: 92 Year
  Sex: Female
  Weight: 50 kg

DRUGS (5)
  1. CILASTATIN SODIUM\IMIPENEM [Suspect]
     Active Substance: CILASTATIN SODIUM\IMIPENEM
     Indication: Infection
     Dosage: 500 MG, TWICE DAILY
     Route: 041
     Dates: start: 20250729, end: 20250731
  2. LINEZOLID [Concomitant]
     Active Substance: LINEZOLID
     Indication: Lung abscess
     Dosage: 0.6 G, TWICE DAILY
     Route: 041
     Dates: start: 20250722, end: 20250725
  3. SODIUM CHLORIDE [Concomitant]
     Active Substance: SODIUM CHLORIDE
     Indication: Medication dilution
     Dosage: 10 ML (ALSO REPORTED AS 50 ML), TWICE DAILY
     Route: 041
     Dates: start: 20250729, end: 20250804
  4. FLUCONAZOLE [Concomitant]
     Active Substance: FLUCONAZOLE
     Indication: Infection
     Route: 065
  5. MEROPENEM [Concomitant]
     Active Substance: MEROPENEM
     Indication: Lung abscess
     Dosage: 0.5 G, FOUR TIMES DAILY
     Route: 041
     Dates: start: 20250722, end: 20250729

REACTIONS (7)
  - Drug eruption [Recovering/Resolving]
  - Dermatitis allergic [Recovering/Resolving]
  - Henoch-Schonlein purpura [Recovering/Resolving]
  - Rash erythematous [Recovering/Resolving]
  - Red blood cell count abnormal [Unknown]
  - Haemoglobin abnormal [Unknown]
  - Ecchymosis [Recovering/Resolving]

NARRATIVE: CASE EVENT DATE: 20250731
